FAERS Safety Report 15943525 (Version 2)
Quarter: 2019Q2

REPORT INFORMATION
  Report Type: Spontaneous
  Country: GB (occurrence: GB)
  Receive Date: 20190210
  Receipt Date: 20190629
  Transmission Date: 20190711
  Serious: Yes (Death, Other)
  Sender: FDA-Public Use
  Company Number: PHHY2019GB030573

PATIENT
  Age: 39 Year
  Sex: Female
  Weight: 42 kg

DRUGS (6)
  1. DEFERIPRONE [Suspect]
     Active Substance: DEFERIPRONE
     Indication: PRODUCT USED FOR UNKNOWN INDICATION
     Dosage: UNK
     Route: 065
     Dates: end: 201304
  2. DESFERAL [Concomitant]
     Active Substance: DEFEROXAMINE MESYLATE
     Indication: CHELATION THERAPY
     Dosage: UNK
     Route: 065
  3. DESFERAL [Concomitant]
     Active Substance: DEFEROXAMINE MESYLATE
     Indication: THALASSAEMIA
  4. EXJADE [Suspect]
     Active Substance: DEFERASIROX
     Indication: THALASSAEMIA
     Dosage: 1.5 G, QD
     Route: 048
     Dates: start: 201304
  5. DESFERRIOXAMINE [Concomitant]
     Active Substance: DEFEROXAMINE MESYLATE
     Indication: CHELATION THERAPY
     Dosage: 2 G, 3-4 TIMES PER WEEK
     Route: 058
  6. EXJADE [Suspect]
     Active Substance: DEFERASIROX
     Indication: CHELATION THERAPY

REACTIONS (13)
  - Liver disorder [Fatal]
  - Type 1 diabetes mellitus [Unknown]
  - Hepatosplenomegaly [Unknown]
  - Blood alkaline phosphatase increased [Unknown]
  - Serum ferritin increased [Unknown]
  - Ascites [Unknown]
  - Hypoparathyroidism [Unknown]
  - Alanine aminotransferase increased [Unknown]
  - Hepatic failure [Fatal]
  - Thalassaemia beta [Fatal]
  - Hyperparathyroidism [Unknown]
  - Iron overload [Fatal]
  - Blood bilirubin increased [Unknown]

NARRATIVE: CASE EVENT DATE: 20160104
